FAERS Safety Report 9796890 (Version 1)
Quarter: 2014Q1

REPORT INFORMATION
  Report Type: Spontaneous
  Country: US (occurrence: US)
  Receive Date: 20140104
  Receipt Date: 20140104
  Transmission Date: 20141002
  Serious: Yes (Death, Other)
  Sender: FDA-Public Use
  Company Number: US-UCBSA-107569

PATIENT
  Age: 59 Year
  Sex: Male

DRUGS (5)
  1. ALPRAZOLAM [Suspect]
     Dosage: INGESTION
  2. ZOLPIDEM [Suspect]
     Dosage: ROUTE: INGESTION
  3. DULOXETINE [Suspect]
     Dosage: ROUTE: INGESTION
  4. TACROLIMUS [Suspect]
     Dosage: ROUTE: INGESTION
  5. AZATHIOPRINE [Suspect]
     Dosage: INGESTION

REACTIONS (1)
  - Completed suicide [Fatal]
